FAERS Safety Report 9618988 (Version 1)
Quarter: 2013Q4

REPORT INFORMATION
  Report Type: Spontaneous
  Country: US (occurrence: US)
  Receive Date: 20131014
  Receipt Date: 20131014
  Transmission Date: 20140711
  Serious: Yes (Hospitalization, Other)
  Sender: FDA-Public Use
  Company Number: US-PFIZER INC-2013292530

PATIENT
  Sex: Female

DRUGS (2)
  1. LYRICA [Suspect]
     Dosage: 75 MG, 2X/DAY
  2. LYRICA [Suspect]
     Dosage: 150 MG, 2X/DAY

REACTIONS (6)
  - Thrombosis [Unknown]
  - Chest discomfort [Unknown]
  - Breast discomfort [Unknown]
  - Dyspnoea [Unknown]
  - Drug ineffective [Unknown]
  - Intervertebral disc protrusion [Unknown]
